FAERS Safety Report 6403956-0 (Version None)
Quarter: 2009Q4

REPORT INFORMATION
  Report Type: 
  Country: None (occurrence: None)
  Receive Date: 20091016
  Receipt Date: 20090731
  Transmission Date: 20100525
  Serious: No
  Sender: FDA-Public Use
  Company Number: CA-ALEXION-A200900629

PATIENT
  Sex: Male

DRUGS (8)
  1. SOLIRIS [Suspect]
     Indication: PAROXYSMAL NOCTURNAL HAEMOGLOBINURIA
     Dosage: 600 MG, QW
     Route: 042
     Dates: start: 20090724
  2. PREDNISONE [Concomitant]
     Dosage: 25 MG, BID
     Route: 048
  3. COUMADIN [Concomitant]
     Dosage: 7.5 MG, QD
     Route: 048
  4. ACCUTANE [Concomitant]
     Dosage: 10 MG, QD
     Route: 048
  5. FOLIC ACID [Concomitant]
     Dosage: UNK
     Route: 048
  6. TYLENOL (CAPLET) [Concomitant]
     Dosage: UNK
     Route: 048
  7. MORPHINE [Concomitant]
     Dosage: UNK
     Route: 048
  8. VITAMINS                           /90003601/ [Concomitant]
     Dosage: UNK
     Route: 048

REACTIONS (1)
  - HEADACHE [None]
